FAERS Safety Report 25564538 (Version 1)
Quarter: 2025Q3

REPORT INFORMATION
  Report Type: Report from Study
  Country: GB (occurrence: GB)
  Receive Date: 20250716
  Receipt Date: 20250716
  Transmission Date: 20251020
  Serious: Yes (Hospitalization)
  Sender: TAKEDA
  Company Number: GB-TAKEDA-2024TUS009000

PATIENT
  Age: 42 Year
  Sex: Female

DRUGS (3)
  1. VEDOLIZUMAB [Suspect]
     Active Substance: VEDOLIZUMAB
     Indication: Colitis ulcerative
  2. VEDOLIZUMAB [Suspect]
     Active Substance: VEDOLIZUMAB
     Indication: Colitis ulcerative
     Dosage: 108 MILLIGRAM, Q2WEEKS
  3. VEDOLIZUMAB [Suspect]
     Active Substance: VEDOLIZUMAB

REACTIONS (14)
  - Abdominal pain upper [Unknown]
  - Vomiting [Unknown]
  - Muscular weakness [Unknown]
  - Headache [Unknown]
  - Decreased immune responsiveness [Unknown]
  - Papule [Unknown]
  - Viral infection [Unknown]
  - COVID-19 [Unknown]
  - Muscle twitching [Unknown]
  - Diarrhoea [Unknown]
  - Breast mass [Unknown]
  - Illness [Unknown]
  - Limb injury [Unknown]
  - Malaise [Unknown]

NARRATIVE: CASE EVENT DATE: 20240101
